FAERS Safety Report 9390937 (Version 1)
Quarter: 2013Q3

REPORT INFORMATION
  Report Type: Spontaneous
  Country: US (occurrence: US)
  Receive Date: 20130709
  Receipt Date: 20130709
  Transmission Date: 20140515
  Serious: No
  Sender: FDA-Public Use
  Company Number: US-PFIZER INC-2013198184

PATIENT
  Age: 79 Year
  Sex: Female

DRUGS (2)
  1. SUTENT [Suspect]
     Indication: RENAL CANCER
     Dosage: 50 MG, UNK
     Dates: start: 20130618
  2. SUTENT [Suspect]
     Indication: MALIGNANT URINARY TRACT NEOPLASM

REACTIONS (1)
  - Drug intolerance [Unknown]
